FAERS Safety Report 10453310 (Version 1)
Quarter: 2014Q3

REPORT INFORMATION
  Report Type: Spontaneous
  Country: BE (occurrence: BE)
  Receive Date: 20140915
  Receipt Date: 20140915
  Transmission Date: 20150326
  Serious: Yes (Death, Hospitalization)
  Sender: FDA-Public Use
  Company Number: PHHY2014BE117267

PATIENT
  Age: 67 Year
  Sex: Male

DRUGS (4)
  1. LOPINAVIR W/RITONAVIR [Suspect]
     Active Substance: LOPINAVIR\RITONAVIR
     Indication: HIV TEST POSITIVE
  2. ABACAVIR [Suspect]
     Active Substance: ABACAVIR
     Indication: HIV TEST POSITIVE
  3. METHYLPREDNISOLONE [Suspect]
     Active Substance: METHYLPREDNISOLONE
     Indication: NEPHROPATHY
     Dosage: 48 MG PER DAY
  4. LAMIVUDINE. [Suspect]
     Active Substance: LAMIVUDINE
     Indication: HIV TEST POSITIVE

REACTIONS (9)
  - Aspergillus infection [Fatal]
  - Multi-organ failure [Fatal]
  - Scar [Fatal]
  - Haemorrhagic infarction [Unknown]
  - Lung infection [Unknown]
  - Cytomegalovirus colitis [Unknown]
  - Enterobacter infection [Unknown]
  - Abscess [Fatal]
  - Pseudomonas infection [Unknown]
